FAERS Safety Report 21626128 (Version 12)
Quarter: 2025Q1

REPORT INFORMATION
  Report Type: Report from Study
  Country: US (occurrence: US)
  Receive Date: 20221122
  Receipt Date: 20250116
  Transmission Date: 20250409
  Serious: Yes (Other)
  Sender: TAKEDA
  Company Number: US-PAREXEL-2021-KAM-US003507

PATIENT
  Age: 54 Year
  Sex: Female
  Weight: 135 kg

DRUGS (33)
  1. GLASSIA [Suspect]
     Active Substance: .ALPHA.1-PROTEINASE INHIBITOR HUMAN
     Indication: Asymptomatic gene carrier
     Dosage: UNK UNK, 1/WEEK
     Dates: start: 20161013
  2. GLASSIA [Suspect]
     Active Substance: .ALPHA.1-PROTEINASE INHIBITOR HUMAN
     Indication: Alpha-1 antitrypsin deficiency
     Dosage: 8000 MILLIGRAM, 1/WEEK
     Dates: start: 20200622
  3. GLASSIA [Suspect]
     Active Substance: .ALPHA.1-PROTEINASE INHIBITOR HUMAN
     Dosage: UNK UNK, 1/WEEK
     Dates: start: 20221222
  4. GLASSIA [Suspect]
     Active Substance: .ALPHA.1-PROTEINASE INHIBITOR HUMAN
     Dosage: UNK UNK, 1/WEEK
     Dates: start: 20230803
  5. GLASSIA [Suspect]
     Active Substance: .ALPHA.1-PROTEINASE INHIBITOR HUMAN
     Dosage: 60 MILLIGRAM/KILOGRAM, 1/WEEK
     Dates: start: 20230907
  6. EPINEPHRINE [Concomitant]
     Active Substance: EPINEPHRINE
  7. MAGNESIUM CITRATE [Concomitant]
     Active Substance: MAGNESIUM CITRATE
  8. SPIRIVA [Concomitant]
     Active Substance: TIOTROPIUM BROMIDE MONOHYDRATE
  9. SODIUM CHLORIDE [Concomitant]
     Active Substance: SODIUM CHLORIDE
  10. SYNTHROID [Concomitant]
     Active Substance: LEVOTHYROXINE SODIUM
  11. LASIX [Concomitant]
     Active Substance: FUROSEMIDE
  12. PFIZER-BIONTECH COVID-19 VACCINE [Concomitant]
     Active Substance: TOZINAMERAN
  13. EPIPEN [Concomitant]
     Active Substance: EPINEPHRINE
  14. ALBUTEROL SULFATE [Concomitant]
     Active Substance: ALBUTEROL SULFATE
  15. OXYGEN [Concomitant]
     Active Substance: OXYGEN
  16. Lmx [Concomitant]
  17. DIPHENHYDRAMINE HYDROCHLORIDE [Concomitant]
     Active Substance: DIPHENHYDRAMINE HYDROCHLORIDE
  18. LISINOPRIL [Concomitant]
     Active Substance: LISINOPRIL
  19. VITAMIN D3 [Concomitant]
     Active Substance: CHOLECALCIFEROL
  20. SYMBICORT [Concomitant]
     Active Substance: BUDESONIDE\FORMOTEROL FUMARATE DIHYDRATE
  21. DIPHENHYDRAMINE [Concomitant]
     Active Substance: DIPHENHYDRAMINE
  22. IBUPROFEN [Concomitant]
     Active Substance: IBUPROFEN
  23. FLUBLOK QUADRIVALENT NOS [Concomitant]
     Active Substance: INFLUENZA VIRUS VACCINE
  24. AMOXICILLIN [Concomitant]
     Active Substance: AMOXICILLIN
  25. TYLENOL EXTRA STRENGTH [Concomitant]
     Active Substance: ACETAMINOPHEN
  26. PRAVASTATIN SODIUM [Concomitant]
     Active Substance: PRAVASTATIN SODIUM
  27. MUPIROCIN [Concomitant]
     Active Substance: MUPIROCIN
  28. UNSPECIFIED INGREDIENT [Concomitant]
     Active Substance: UNSPECIFIED INGREDIENT
  29. PROAIR HFA [Concomitant]
     Active Substance: ALBUTEROL SULFATE
  30. VITAMIN C [Concomitant]
     Active Substance: ASCORBIC ACID
  31. PREDNISONE [Concomitant]
     Active Substance: PREDNISONE
  32. CRANBERRY [Concomitant]
     Active Substance: CRANBERRY
  33. GABAPENTIN [Concomitant]
     Active Substance: GABAPENTIN

REACTIONS (20)
  - Cataract [Unknown]
  - Vitamin D decreased [Unknown]
  - Dry mouth [Unknown]
  - Allergy to chemicals [Unknown]
  - Urinary tract infection [Recovered/Resolved]
  - Sneezing [Unknown]
  - Lacrimation increased [Unknown]
  - Post procedural infection [Unknown]
  - Oral infection [Unknown]
  - Weight increased [Unknown]
  - Product dose omission issue [Unknown]
  - Insurance issue [Unknown]
  - Off label use [Unknown]
  - Rash vesicular [Unknown]
  - Dust allergy [Unknown]
  - Herpes zoster [Unknown]
  - Hypersensitivity [Unknown]
  - Malaise [Unknown]
  - Cough [Unknown]
  - Dyspnoea [Unknown]

NARRATIVE: CASE EVENT DATE: 20161013
